FAERS Safety Report 5148140-6 (Version None)
Quarter: 2006Q4

REPORT INFORMATION
  Report Type: 
  Country: None (occurrence: None)
  Receive Date: 20061106
  Receipt Date: 20061024
  Transmission Date: 20070319
  Serious: Yes (Life-Threatening, Hospitalization)
  Sender: FDA-Public Use
  Company Number: 200610AGG00506

PATIENT
  Age: 61 Year
  Sex: Male
  Weight: 80 kg

DRUGS (6)
  1. AGGRASTAT [Suspect]
     Indication: ANGINA PECTORIS
     Dosage: 0.4 MCG/KG/MIN 30MIN. IV
     Route: 042
     Dates: start: 20060201, end: 20060201
  2. AGGRASTAT [Suspect]
     Indication: ANGINA PECTORIS
     Dosage: 0.1 MCG/KG/MIN IV
     Route: 042
     Dates: start: 20060201, end: 20060202
  3. HEPARIN SODIUM 5 IU [Suspect]
     Indication: ANGINA PECTORIS
     Dosage: IV
     Route: 042
     Dates: start: 20060201, end: 20060202
  4. ASPIRIN [Suspect]
     Indication: DRUG USE FOR UNKNOWN INDICATION
     Dosage: 300MG/DAILY PO
     Route: 048
     Dates: start: 20060201, end: 20060201
  5. PLAVIX [Suspect]
     Indication: DRUG USE FOR UNKNOWN INDICATION
     Dosage: 300MG/ONE DOSE PO
     Route: 048
     Dates: start: 20060201, end: 20060201
  6. CARVEDILOL [Concomitant]

REACTIONS (1)
  - THROMBOCYTOPENIA [None]
